FAERS Safety Report 6983484-4 (Version None)
Quarter: 2010Q3

REPORT INFORMATION
  Report Type: 
  Country: None (occurrence: None)
  Receive Date: 20100914
  Receipt Date: 20080529
  Transmission Date: 20110219
  Serious: Yes (Death, Other)
  Sender: FDA-Public Use
  Company Number: US-WYE-H02015208

PATIENT
  Age: 2 Month
  Sex: Male

DRUGS (3)
  1. CHILDREN'S ADVIL [Suspect]
     Indication: PRODUCT USED FOR UNKNOWN INDICATION
     Dosage: UNKNOWN
     Route: 065
  2. CARBAXEFED DM RF [Suspect]
     Indication: INTERSTITIAL LUNG DISEASE
     Dosage: 1/4 DROPPER FULL X 2 DOSES
     Route: 065
  3. CHILDREN'S MOTRIN [Suspect]
     Indication: PRODUCT USED FOR UNKNOWN INDICATION
     Dosage: UNKNOWN
     Route: 065

REACTIONS (3)
  - CONSTIPATION [None]
  - DEATH [None]
  - PRODUCT QUALITY ISSUE [None]
